FAERS Safety Report 9272323 (Version 1)
Quarter: 2013Q2

REPORT INFORMATION
  Report Type: Spontaneous
  Country: US (occurrence: US)
  Receive Date: 20130506
  Receipt Date: 20130506
  Transmission Date: 20140414
  Serious: No
  Sender: FDA-Public Use
  Company Number: US-ASTRAZENECA-2013SE09640

PATIENT
  Age: 61 Year
  Sex: Female

DRUGS (1)
  1. PRILOSEC OTC, WILDBERRY FLAVOR [Suspect]
     Dosage: DAILY
     Route: 048

REACTIONS (1)
  - Dysgeusia [Unknown]
